FAERS Safety Report 11783400 (Version 1)
Quarter: 2015Q4

REPORT INFORMATION
  Report Type: Spontaneous
  Country: GB (occurrence: GB)
  Receive Date: 20151127
  Receipt Date: 20151127
  Transmission Date: 20160305
  Serious: Yes (Life-Threatening, Hospitalization)
  Sender: FDA-Public Use
  Company Number: GB-ROCHE-1668900

PATIENT
  Age: 62 Year
  Sex: Male
  Weight: 107 kg

DRUGS (27)
  1. ASPIRIN. [Concomitant]
     Active Substance: ASPIRIN
     Indication: GOUT
     Route: 048
     Dates: start: 1998, end: 20151027
  2. TESTOSTERONE. [Concomitant]
     Active Substance: TESTOSTERONE
     Dosage: 50 MG/5 GRAM SACHET
     Route: 065
  3. BUTRANS [Concomitant]
     Active Substance: BUPRENORPHINE
     Dosage: 10 MICROGRAMS/HOUR
     Route: 062
     Dates: start: 20131211, end: 20150928
  4. ASPIRIN. [Concomitant]
     Active Substance: ASPIRIN
     Indication: PROPHYLAXIS
     Dosage: E/C TABLETS IN THE MORNING
     Route: 048
     Dates: start: 20020705, end: 20151027
  5. FLUOXETINE HYDROCHLORIDE. [Concomitant]
     Active Substance: FLUOXETINE HYDROCHLORIDE
     Route: 065
     Dates: start: 20110816, end: 20151013
  6. TADALAFIL [Concomitant]
     Active Substance: TADALAFIL
     Dosage: AS DIRECTED
     Route: 065
     Dates: start: 20150501, end: 20150818
  7. TIOTROPIUM [Concomitant]
     Active Substance: TIOTROPIUM
     Dosage: DRY POWDER CAPSULES FOR INHALATION
     Route: 065
     Dates: start: 20140915, end: 20151022
  8. TERBUTALINE SULPHATE [Concomitant]
     Active Substance: TERBUTALINE SULFATE
     Dosage: BREATH-ACTUATED DRY POWDER INHALER
     Route: 055
     Dates: start: 20140723, end: 20151022
  9. PARACETAMOL [Concomitant]
     Active Substance: ACETAMINOPHEN
     Route: 065
     Dates: start: 20140307, end: 20150914
  10. RAMIPRIL. [Concomitant]
     Active Substance: RAMIPRIL
     Route: 065
     Dates: start: 20120111, end: 20150914
  11. ORLISTAT [Suspect]
     Active Substance: ORLISTAT
     Indication: WEIGHT DECREASED
     Route: 048
     Dates: start: 20150914, end: 20151027
  12. LACTULOSE. [Concomitant]
     Active Substance: LACTULOSE
     Dosage: SOLUTION 3.1-3.7 G/5ML
     Route: 065
     Dates: start: 20121109, end: 20150721
  13. KETOCONAZOLE. [Concomitant]
     Active Substance: KETOCONAZOLE
     Dosage: USE AS DIRECTED.
     Route: 065
     Dates: start: 20091211, end: 20150316
  14. HUMULIN NOS [Concomitant]
     Active Substance: INSULIN HUMAN
     Dosage: 100 UNITS/ML 3 ML CARTRIDGE AS DIRECTED
     Route: 065
     Dates: start: 20131021, end: 20151013
  15. AMLODIPINE [Concomitant]
     Active Substance: AMLODIPINE BESYLATE
     Indication: HYPERTENSION
     Route: 048
     Dates: start: 2006, end: 20151027
  16. BUPRENORPHINE. [Concomitant]
     Active Substance: BUPRENORPHINE
     Dosage: 5 MICROGRAMS/HOURLY
     Route: 062
     Dates: start: 20150511, end: 20151022
  17. PANTOPRAZOLE [Concomitant]
     Active Substance: PANTOPRAZOLE SODIUM
     Route: 065
     Dates: start: 20130520, end: 20151013
  18. RANITIDINE [Concomitant]
     Active Substance: RANITIDINE\RANITIDINE HYDROCHLORIDE
     Dosage: AT NIGHT
     Route: 065
     Dates: start: 20120919, end: 20151013
  19. METFORMIN HYDROCHLORIDE. [Concomitant]
     Active Substance: METFORMIN HYDROCHLORIDE
     Route: 065
     Dates: start: 20111124, end: 20150818
  20. SYMBICORT [Concomitant]
     Active Substance: BUDESONIDE\FORMOTEROL FUMARATE DIHYDRATE
     Dosage: TURBOHALER 100/6 MICROGRAMS/INHALATION
     Route: 055
  21. QUININE SULFATE. [Concomitant]
     Active Substance: QUININE SULFATE
     Route: 065
     Dates: start: 20130823, end: 20150928
  22. ATORVASTATIN [Concomitant]
     Active Substance: ATORVASTATIN
     Route: 065
     Dates: start: 20060710, end: 20151013
  23. AMITRIPTYLINE [Concomitant]
     Active Substance: AMITRIPTYLINE
     Indication: NEURALGIA
     Dosage: AT NIGHT
     Route: 048
     Dates: start: 2013, end: 20151027
  24. TADALAFIL [Concomitant]
     Active Substance: TADALAFIL
     Dosage: IN THE MORNING
     Route: 065
     Dates: start: 20151009, end: 20151009
  25. FOLIC ACID. [Concomitant]
     Active Substance: FOLIC ACID
     Route: 065
     Dates: start: 20130903, end: 20150914
  26. BISOPROLOL FUMARATE. [Concomitant]
     Active Substance: BISOPROLOL FUMARATE
     Indication: HYPERTENSION
     Route: 048
     Dates: start: 2006, end: 20151027
  27. GLUCOSE [Concomitant]
     Active Substance: DEXTROSE
     Dosage: USE AS DIRECTED.
     Route: 048
     Dates: start: 20110207, end: 20131030

REACTIONS (4)
  - Acute kidney injury [Recovering/Resolving]
  - Hypophagia [Recovering/Resolving]
  - Lethargy [Recovering/Resolving]
  - Malaise [Recovering/Resolving]

NARRATIVE: CASE EVENT DATE: 20151027
